FAERS Safety Report 5025870-8 (Version None)
Quarter: 2006Q2

REPORT INFORMATION
  Report Type: 
  Country: None (occurrence: None)
  Receive Date: 20060427
  Receipt Date: 20050804
  Transmission Date: 20061013
  Serious: Yes (Other)
  Sender: FDA-Public Use
  Company Number: 2005111571

PATIENT
  Sex: Female

DRUGS (4)
  1. ZITHROMAX       (MAC) [Suspect]
     Indication: MYCOBACTERIUM AVIUM COMPLEX INFECTION
     Dates: start: 20050101
  2. CIPROFLOXACIN [Concomitant]
  3. ALL OTHER THERAPEUTIC PRODUCT [Concomitant]
  4. NEXIUM [Concomitant]

REACTIONS (2)
  - PLATELET COUNT DECREASED [None]
  - WHITE BLOOD CELL COUNT DECREASED [None]
